FAERS Safety Report 9472683 (Version 2)
Quarter: 2013Q3

REPORT INFORMATION
  Report Type: Spontaneous
  Country: FR (occurrence: FR)
  Receive Date: 20130823
  Receipt Date: 20130913
  Transmission Date: 20140515
  Serious: Yes (Life-Threatening, Hospitalization)
  Sender: FDA-Public Use
  Company Number: FR-ASTRAZENECA-2013SE64827

PATIENT
  Age: 24827 Day
  Sex: Male

DRUGS (5)
  1. MOPRAL [Suspect]
     Route: 048
     Dates: start: 20130501, end: 20130507
  2. APRANAX [Suspect]
     Indication: ARTHRALGIA
     Route: 048
     Dates: start: 20130802, end: 20130807
  3. AVLOCARDYL [Concomitant]
     Dosage: LONG LASTING TREATMENT
     Dates: end: 201308
  4. AVLOCARDYL [Concomitant]
     Dosage: LONG LASTING TREATMENT
  5. VESICARE [Concomitant]
     Dosage: LONG LASTING TREATMENT

REACTIONS (3)
  - Acute pulmonary oedema [Recovered/Resolved]
  - Hypertensive crisis [Recovered/Resolved]
  - Dyspnoea [Recovered/Resolved]
